FAERS Safety Report 5290619-0 (Version None)
Quarter: 2007Q2

REPORT INFORMATION
  Report Type: 
  Country: None (occurrence: None)
  Receive Date: 20070405
  Receipt Date: 20070405
  Transmission Date: 20071010
  Serious: Yes (Life-Threatening)
  Sender: FDA-Public Use
  Company Number: None

PATIENT
  Age: 71 Year
  Sex: Female
  Weight: 75.4 kg

DRUGS (8)
  1. HEPARIN [Suspect]
     Indication: THROMBOSIS PROPHYLAXIS
     Dosage: 5000 U SQ Q 8?
     Route: 058
     Dates: start: 20070130, end: 20070205
  2. DEXAMETHASONE [Concomitant]
  3. LEVOTHYROXINE SODIUM [Concomitant]
  4. TEN [Concomitant]
  5. MANNITOL [Concomitant]
  6. PHENYTOIN [Concomitant]
  7. INSULIN [Concomitant]
  8. PHENYLEPHRINE [Concomitant]

REACTIONS (4)
  - ACTIVATED PARTIAL THROMBOPLASTIN TIME PROLONGED [None]
  - CEREBRAL HAEMATOMA [None]
  - CONVULSION [None]
  - POST PROCEDURAL HAEMATOMA [None]
